FAERS Safety Report 10981547 (Version 1)
Quarter: 2015Q1

REPORT INFORMATION
  Report Type: Spontaneous
  Country: US (occurrence: None)
  Receive Date: 20150227
  Receipt Date: 20150227
  Transmission Date: 20150721
  Serious: Yes (Other)
  Sender: FDA-Public Use
  Company Number: LMI-2014-00152

PATIENT
  Age: 55 Year
  Sex: Male
  Weight: 104.33 kg

DRUGS (11)
  1. VITAMIN NOS [Concomitant]
  2. VITAMIN E [Concomitant]
     Active Substance: .ALPHA.-TOCOPHEROL
  3. VITAMIN B12 [Concomitant]
     Active Substance: CYANOCOBALAMIN
  4. OMEPRAZOLE. [Concomitant]
     Active Substance: OMEPRAZOLE
  5. CYMBALTA [Concomitant]
     Active Substance: DULOXETINE HYDROCHLORIDE
  6. DEFINITY [Suspect]
     Active Substance: PERFLUTREN
     Indication: STRESS ECHOCARDIOGRAM
     Dosage: (1.7 CC DEFINITY DILUTED IN 8.3 CC NORMAL SALINE) (2 ML, 1 IN 1 D)
     Route: 040
     Dates: start: 20140415, end: 20140415
  7. DEFINITY [Suspect]
     Active Substance: PERFLUTREN
     Indication: STRESS ECHOCARDIOGRAM
     Dosage: (1.7 CC DEFINITY DILUTED IN 8.3 CC NORMAL SALINE) (3 ML, 1 IN 1 D)
     Route: 040
     Dates: start: 20140415, end: 20140415
  8. CARBAMAZEPINE. [Concomitant]
     Active Substance: CARBAMAZEPINE
  9. ACETYLSALICYLIC ACID [Concomitant]
     Active Substance: ASPIRIN
  10. SIMVASTATIN. [Concomitant]
     Active Substance: SIMVASTATIN
  11. DIAZEPAM. [Concomitant]
     Active Substance: DIAZEPAM

REACTIONS (9)
  - Tongue disorder [None]
  - Rash [None]
  - Drug hypersensitivity [None]
  - Dysphagia [None]
  - Flushing [None]
  - Dizziness [None]
  - Dyspnoea [None]
  - Urticaria [None]
  - Nausea [None]

NARRATIVE: CASE EVENT DATE: 20140415
